FAERS Safety Report 5156310-6 (Version None)
Quarter: 2006Q4

REPORT INFORMATION
  Report Type: 
  Country: None (occurrence: None)
  Receive Date: 20061122
  Receipt Date: 20060127
  Transmission Date: 20070319
  Serious: Yes (Death, Life-Threatening)
  Sender: FDA-Public Use
  Company Number: JP-JPN-A200600378

PATIENT
  Age: 6 Year
  Sex: Male

DRUGS (2)
  1. ALKERAN [Suspect]
     Route: 042
     Dates: start: 20040601, end: 20040601
  2. THIOTEPA [Concomitant]
     Route: 065
     Dates: start: 20040601, end: 20040601

REACTIONS (5)
  - FEBRILE NEUTROPENIA [None]
  - HEPATIC VEIN OCCLUSION [None]
  - MUCOUS MEMBRANE DISORDER [None]
  - RECURRENT CANCER [None]
  - VENOOCCLUSIVE LIVER DISEASE [None]
